FAERS Safety Report 14341490 (Version 2)
Quarter: 2018Q1

REPORT INFORMATION
  Report Type: Report from Study
  Country: DZ (occurrence: DZ)
  Receive Date: 20180102
  Receipt Date: 20180108
  Transmission Date: 20180509
  Serious: Yes (Other)
  Sender: FDA-Public Use
  Company Number: DZ-ROCHE-2046466

PATIENT
  Sex: Female

DRUGS (3)
  1. CARBOPLATIN. [Suspect]
     Active Substance: CARBOPLATIN
     Indication: OVARIAN CANCER
     Route: 065
  2. PACLITAXEL. [Suspect]
     Active Substance: PACLITAXEL
     Indication: OVARIAN CANCER
     Route: 065
  3. BEVACIZUMAB. [Suspect]
     Active Substance: BEVACIZUMAB
     Indication: OVARIAN CANCER
     Route: 065

REACTIONS (8)
  - Epistaxis [Unknown]
  - Deep vein thrombosis [Unknown]
  - Neurotoxicity [Unknown]
  - Nephrotic syndrome [Unknown]
  - Genital haemorrhage [Unknown]
  - Nephropathy toxic [Unknown]
  - Haemorrhagic disorder [Unknown]
  - Hypertension [Unknown]
